FAERS Safety Report 4558126-8 (Version None)
Quarter: 2005Q1

REPORT INFORMATION
  Report Type: 
  Country: None (occurrence: None)
  Receive Date: 20050121
  Receipt Date: 20041102
  Transmission Date: 20050727
  Serious: Yes (Life-Threatening, Hospitalization)
  Sender: FDA-Public Use
  Company Number: 200413442JP

PATIENT
  Age: 74 Year
  Sex: Male

DRUGS (7)
  1. RILUTEK [Suspect]
     Indication: AMYOTROPHIC LATERAL SCLEROSIS
     Route: 048
     Dates: start: 20000122, end: 20000314
  2. VOLTAREN [Concomitant]
     Indication: PYREXIA
     Route: 054
     Dates: start: 20000306
  3. CEFOTIAM HYDROCHLORIDE [Concomitant]
     Indication: NOCTURIA
     Route: 041
     Dates: start: 20000307, end: 20000308
  4. KEITEN [Concomitant]
     Indication: NOCTURIA
     Route: 041
     Dates: start: 20000309, end: 20000316
  5. ALBUMIN (HUMAN) [Concomitant]
     Indication: HYPOALBUMINAEMIA
     Route: 041
     Dates: start: 20000312, end: 20000314
  6. UNASYN ORAL SUSPENSION [Concomitant]
     Indication: PYELONEPHRITIS
     Route: 041
     Dates: start: 20000317, end: 20000401
  7. FESIN [Concomitant]
     Indication: ANAEMIA
     Route: 041
     Dates: start: 20000312, end: 20000316

REACTIONS (16)
  - ANAEMIA [None]
  - BLOOD CREATININE INCREASED [None]
  - BLOOD SODIUM DECREASED [None]
  - CONDITION AGGRAVATED [None]
  - HYPOALBUMINAEMIA [None]
  - INFLAMMATION [None]
  - MELAENA [None]
  - PEPTIC ULCER [None]
  - PROTEIN TOTAL DECREASED [None]
  - PYELONEPHRITIS [None]
  - RENAL FAILURE [None]
  - RESPIRATORY FAILURE [None]
  - SHOCK [None]
  - STRESS [None]
  - URINARY TRACT DISORDER [None]
  - URINARY TRACT INFECTION [None]
